FAERS Safety Report 7015001-7 (Version None)
Quarter: 2010Q3

REPORT INFORMATION
  Report Type: 
  Country: None (occurrence: None)
  Receive Date: 20100927
  Receipt Date: 20100107
  Transmission Date: 20110219
  Serious: No
  Sender: FDA-Public Use
  Company Number: US-ASTRAZENECA-2010SE00736

PATIENT
  Age: 72 Year
  Sex: Female

DRUGS (4)
  1. ARIMIDEX [Suspect]
     Indication: BREAST CANCER
     Route: 048
     Dates: start: 20090601
  2. METOPROLOL TARTRATE [Concomitant]
     Indication: HYPERTENSION
  3. SYNTHROID [Concomitant]
     Indication: THYROID DISORDER
  4. BENICAR HCT [Concomitant]
     Indication: HYPERTENSION

REACTIONS (3)
  - APPLICATION SITE WARMTH [None]
  - HOT FLUSH [None]
  - PARAESTHESIA [None]
